FAERS Safety Report 20217650 (Version 1)
Quarter: 2021Q4

REPORT INFORMATION
  Report Type: Spontaneous
  Country: DE (occurrence: DE)
  Receive Date: 20211222
  Receipt Date: 20211222
  Transmission Date: 20220303
  Serious: Yes (Hospitalization)
  Sender: FDA-Public Use
  Company Number: None

PATIENT
  Age: 83 Year
  Sex: Female
  Weight: 78 kg

DRUGS (8)
  1. LOSARTAN POTASSIUM [Suspect]
     Active Substance: LOSARTAN POTASSIUM
     Dosage: 50 MG, 1-0-0-0, TABLETS
     Route: 048
  2. EPLERENONE [Suspect]
     Active Substance: EPLERENONE
     Dosage: 25 MG, 1-0-0-0, TABLETS
     Route: 048
  3. SERTRALINE HYDROCHLORIDE [Suspect]
     Active Substance: SERTRALINE HYDROCHLORIDE
     Dosage: 150 MG, 1-0-0-0, TABLETS
     Route: 048
  4. PANTOPRAZOLE [Concomitant]
     Active Substance: PANTOPRAZOLE
     Dosage: 40 MG, 1-0-0-0, RETARD-TABLETS
     Route: 048
  5. SOLIFENACIN [Concomitant]
     Active Substance: SOLIFENACIN
     Dosage: 10 MG, 1-0-0-0, TABLETS
     Route: 048
  6. EDOXABAN [Concomitant]
     Active Substance: EDOXABAN
     Dosage: 30 MG, 1-0-0-0, TABLETS
     Route: 048
  7. AMLODIPINE BESYLATE [Concomitant]
     Active Substance: AMLODIPINE BESYLATE
     Dosage: 10 MG, 1-0-0-0, TABLETS
     Route: 048
  8. METOPROLOL [Concomitant]
     Active Substance: METOPROLOL
     Dosage: 47.5 MG, 1-0-1-0, TABLETS
     Route: 048

REACTIONS (2)
  - Atrial fibrillation [Recovering/Resolving]
  - Labelled drug-drug interaction medication error [Unknown]
